FAERS Safety Report 5232709-4 (Version None)
Quarter: 2007Q1

REPORT INFORMATION
  Report Type: 
  Country: None (occurrence: None)
  Receive Date: 20070206
  Receipt Date: 20070206
  Transmission Date: 20070707
  Serious: Yes (Death, Life-Threatening, Hospitalization)
  Sender: FDA-Public Use
  Company Number: None

PATIENT
  Age: 79 Year
  Sex: Male
  Weight: 75 kg

DRUGS (13)
  1. ASPIRIN [Suspect]
     Indication: VASCULAR DEMENTIA
     Dosage: 81 MG QD PO
     Route: 048
     Dates: start: 20011001, end: 20050504
  2. CLOPIDOGREL [Suspect]
     Indication: VASCULAR DEMENTIA
     Dosage: 75 MG QD PO
     Route: 048
     Dates: start: 20011001, end: 20050504
  3. GUAIFENESIN [Concomitant]
  4. ASPIRIN [Concomitant]
  5. ISOSORBIDE DINITRATE [Concomitant]
  6. RANIDITINE [Concomitant]
  7. NTG SL [Concomitant]
  8. SERTRALINE [Concomitant]
  9. SIMVASTATIN [Concomitant]
  10. ALBUTEROL [Concomitant]
  11. PSYLIIUM [Concomitant]
  12. GALANTAMINE HYDROBROMIDE [Concomitant]
  13. QUETIAPINE FUMARATE [Concomitant]

REACTIONS (4)
  - CEREBRAL INFARCTION [None]
  - FALL [None]
  - HAEMORRHAGE [None]
  - PNEUMONIA [None]
